FAERS Safety Report 4616039-7 (Version None)
Quarter: 2005Q1

REPORT INFORMATION
  Report Type: 
  Country: None (occurrence: None)
  Receive Date: 20050323
  Receipt Date: 20050318
  Transmission Date: 20050727
  Serious: Yes (Hospitalization, Other)
  Sender: FDA-Public Use
  Company Number: PHBS2005FR03888

PATIENT
  Age: 70 Year
  Sex: Male

DRUGS (2)
  1. HYPERIUM [Suspect]
  2. LOPRESSOR [Suspect]
     Indication: HYPERTENSION
     Route: 048

REACTIONS (3)
  - BLOOD PRESSURE INADEQUATELY CONTROLLED [None]
  - DRUG INTERACTION [None]
  - PANCREATITIS [None]
